FAERS Safety Report 18117512 (Version 2)
Quarter: 2020Q3

REPORT INFORMATION
  Report Type: Spontaneous
  Country: GB (occurrence: GB)
  Receive Date: 20200806
  Receipt Date: 20200918
  Transmission Date: 20201103
  Serious: Yes (Life-Threatening, Hospitalization)
  Sender: FDA-Public Use
  Company Number: GB-TEVA-2020-GB-1809532

PATIENT
  Age: 75 Year
  Sex: Male

DRUGS (37)
  1. OLANZAPINE. [Suspect]
     Active Substance: OLANZAPINE
     Indication: DELIRIUM
     Dosage: 20 MILLIGRAM DAILY; AT NIGHT
     Route: 048
  2. CEFTRIAXONE. [Concomitant]
     Active Substance: CEFTRIAXONE
  3. AMIODARONE [Concomitant]
     Active Substance: AMIODARONE
  4. MIDAZOLAM. [Concomitant]
     Active Substance: MIDAZOLAM
  5. MEROPENEM. [Concomitant]
     Active Substance: MEROPENEM
  6. GENTAMICIN. [Concomitant]
     Active Substance: GENTAMICIN
  7. FOSFOMYCIN [Concomitant]
     Active Substance: FOSFOMYCIN
  8. ZOLPIDEM [Concomitant]
     Active Substance: ZOLPIDEM TARTRATE
  9. MORPHINE [Concomitant]
     Active Substance: MORPHINE
  10. ACETYLSALICYLIC ACID [Concomitant]
     Active Substance: ASPIRIN
  11. BISOPROLOL [Concomitant]
     Active Substance: BISOPROLOL
  12. TAZOCIN [Concomitant]
     Active Substance: PIPERACILLIN SODIUM\TAZOBACTAM SODIUM
  13. SPIRONOLACTONE. [Concomitant]
     Active Substance: SPIRONOLACTONE
  14. ROCURONIUM BROMIDE. [Concomitant]
     Active Substance: ROCURONIUM BROMIDE
  15. THIAMINE. [Concomitant]
     Active Substance: THIAMINE
  16. DOXAZOSIN [Concomitant]
     Active Substance: DOXAZOSIN MESYLATE
  17. FUROSEMIDE. [Concomitant]
     Active Substance: FUROSEMIDE
  18. HALOPERIDOL. [Concomitant]
     Active Substance: HALOPERIDOL
  19. LANSOPRAZOLE. [Concomitant]
     Active Substance: LANSOPRAZOLE
  20. VANCOMYCIN [Concomitant]
     Active Substance: VANCOMYCIN
  21. OMEPRAZOLE. [Concomitant]
     Active Substance: OMEPRAZOLE
  22. DEXAMETHASONE. [Concomitant]
     Active Substance: DEXAMETHASONE
  23. PARACETAMOL [Concomitant]
     Active Substance: ACETAMINOPHEN
  24. NOREPINEPHRINE. [Concomitant]
     Active Substance: NOREPINEPHRINE
  25. LEVOFLOXACIN. [Concomitant]
     Active Substance: LEVOFLOXACIN
  26. CARBOCISTEINE [Concomitant]
     Active Substance: CARBOCYSTEINE
  27. LORAZEPAM. [Concomitant]
     Active Substance: LORAZEPAM
  28. AZITHROMYCIN ANHYDROUS. [Concomitant]
     Active Substance: AZITHROMYCIN ANHYDROUS
  29. TINZAPARIN [Concomitant]
     Active Substance: TINZAPARIN
  30. MELATONIN [Concomitant]
     Active Substance: MELATONIN
  31. AMLODIPINE [Concomitant]
     Active Substance: AMLODIPINE BESYLATE
  32. INSULIN [Concomitant]
     Active Substance: INSULIN NOS
  33. RANITIDINE. [Concomitant]
     Active Substance: RANITIDINE
  34. DOCUSATE [Concomitant]
     Active Substance: DOCUSATE
  35. HYOSCINE HYDROBROMIDE [Concomitant]
     Active Substance: SCOPOLAMINE HYDROBROMIDE
  36. CYCLIZINE [Concomitant]
     Active Substance: CYCLIZINE
  37. ACICLOVIR [Concomitant]
     Active Substance: ACYCLOVIR

REACTIONS (1)
  - Polycythaemia [Unknown]

NARRATIVE: CASE EVENT DATE: 20200601
